FAERS Safety Report 19724952 (Version 4)
Quarter: 2022Q2

REPORT INFORMATION
  Report Type: Other
  Country: US (occurrence: None)
  Receive Date: 20210819
  Receipt Date: 20220507
  Transmission Date: 20220721
  Serious: Yes (Other)
  Sender: FDA-Public Use
  Company Number: US-ROCHE-2888519

PATIENT
  Age: 56 Year
  Sex: Female

DRUGS (20)
  1. OCREVUS [Suspect]
     Active Substance: OCRELIZUMAB
     Indication: Relapsing multiple sclerosis
     Dosage: HALF DOSES ;ONGOING: NO?PRESCRIBED AS 300 MG ON DAY 1 AND DAY 15 AND THAN 600 MG
     Route: 042
     Dates: start: 20200820, end: 20200909
  2. OCREVUS [Suspect]
     Active Substance: OCRELIZUMAB
     Dosage: ONE DOSE ;ONGOING: NO
     Route: 042
     Dates: start: 20210210, end: 20210210
  3. OCREVUS [Suspect]
     Active Substance: OCRELIZUMAB
     Route: 042
     Dates: start: 20200826, end: 20210210
  4. OXYCODONE [Concomitant]
     Active Substance: OXYCODONE
     Indication: Intervertebral disc degeneration
     Dosage: STARTED ABOUT 2 YEARS AGO AND SHE USUALLY ONLY TAKES 3 DOSES ;ONGOING: YES
     Route: 048
  5. PANTOPRAZOLE [Concomitant]
     Active Substance: PANTOPRAZOLE
     Indication: Gastrooesophageal reflux disease
     Dosage: ONLY TAKES ONCE A DAY START DATE UNKNOWN ;ONGOING: YES
     Route: 048
  6. LISINOPRIL [Concomitant]
     Active Substance: LISINOPRIL
     Indication: Hypertension
     Dosage: STARTED ABOUT 2 MONTHS AGO ;ONGOING: YES
     Route: 048
     Dates: start: 2021
  7. LEVOTHYROXINE [Concomitant]
     Active Substance: LEVOTHYROXINE
     Indication: Hypothyroidism
     Dosage: DOSE INCREASED ON UNKNOWN DATE AFTER OCREVUS ;ONGOING: YES
     Route: 048
  8. LEVOTHYROXINE [Concomitant]
     Active Substance: LEVOTHYROXINE
     Dosage: STARTED ABOUT 25 YEARS AGO ;ONGOING: YES
     Route: 048
  9. AUBAGIO [Concomitant]
     Active Substance: TERIFLUNOMIDE
     Indication: Relapsing multiple sclerosis
     Route: 048
     Dates: start: 20210529
  10. TRAZODONE [Concomitant]
     Active Substance: TRAZODONE HYDROCHLORIDE
     Indication: Sleep disorder
     Route: 048
     Dates: start: 202106
  11. METOPROLOL [Concomitant]
     Active Substance: METOPROLOL
     Route: 048
     Dates: start: 2018
  12. VENLAFAXINE [Concomitant]
     Active Substance: VENLAFAXINE HYDROCHLORIDE
     Indication: Depression
     Dosage: STARTED 6 MONTHS AGO ;ONGOING: YES
     Route: 048
     Dates: start: 2021
  13. PROAIR HFA [Concomitant]
     Active Substance: ALBUTEROL SULFATE
     Indication: Asthma
     Dosage: STARTED BEFORE OCREVUS UNKNOWN DATE, 2 PUFFS AS NEEDED ;ONGOING: YES
     Route: 055
  14. ZYRTEC [Concomitant]
     Active Substance: CETIRIZINE HYDROCHLORIDE
     Indication: Hypersensitivity
     Dosage: STARTED ABOUT 6 MONTHS AGO ALTERNATES WITH CLARITIN ;ONGOING: YES
     Route: 048
     Dates: start: 2021
  15. CLARITIN [Concomitant]
     Active Substance: LORATADINE
     Indication: Hypersensitivity
     Dosage: STARTED ABOUT 2 YEARS AGO AND ALTERNATING WITH ZYRTEC ;ONGOING: YES
  16. BIOTIN [Concomitant]
     Active Substance: BIOTIN
     Dosage: STARTED ABOUT 2 YEARS AGO ;ONGOING: YES
     Route: 048
  17. VITAMIN D3 [Concomitant]
     Active Substance: CHOLECALCIFEROL
     Dosage: STARTED ABOUT 10 YEARS AGO ;ONGOING: YES
     Route: 048
  18. COLACE [Concomitant]
     Active Substance: DOCUSATE SODIUM
     Indication: Constipation
     Dosage: AS NEEDED START DATE UNKNOWN ;ONGOING: YES
     Route: 048
  19. AMPHETAMINE;DEXTROAMPHETAMINE [Concomitant]
     Dosage: STARTED ABOUT 1 YEAR AGO ;ONGOING: YES
     Route: 048
  20. BACLOFEN [Concomitant]
     Active Substance: BACLOFEN
     Indication: Muscle spasms
     Dosage: STARTED ABOUT 1 YEAR AGO AS NEEDED ;ONGOING: YES
     Route: 048
     Dates: start: 2020

REACTIONS (16)
  - Hypersensitivity [Recovering/Resolving]
  - Asthenia [Not Recovered/Not Resolved]
  - Fatigue [Not Recovered/Not Resolved]
  - Dysphonia [Not Recovered/Not Resolved]
  - Alopecia [Not Recovered/Not Resolved]
  - Weight increased [Not Recovered/Not Resolved]
  - Multiple sclerosis relapse [Recovering/Resolving]
  - Hypertension [Not Recovered/Not Resolved]
  - Chest pain [Recovered/Resolved]
  - Myopia [Not Recovered/Not Resolved]
  - Photopsia [Recovering/Resolving]
  - Pupillary disorder [Recovering/Resolving]
  - Hypothyroidism [Recovered/Resolved]
  - Gait disturbance [Not Recovered/Not Resolved]
  - Cellulitis [Not Recovered/Not Resolved]
  - Panic reaction [Not Recovered/Not Resolved]

NARRATIVE: CASE EVENT DATE: 20200820
